FAERS Safety Report 5526037-7 (Version None)
Quarter: 2007Q4

REPORT INFORMATION
  Report Type: 
  Country: None (occurrence: None)
  Receive Date: 20071126
  Receipt Date: 20071116
  Transmission Date: 20080405
  Serious: Yes (Hospitalization, Other)
  Sender: FDA-Public Use
  Company Number: US-ABBOTT-07P-163-0425018-00

PATIENT
  Sex: Female
  Weight: 90.72 kg

DRUGS (13)
  1. HUMIRA [Suspect]
     Indication: RHEUMATOID ARTHRITIS
     Route: 058
     Dates: start: 20050101
  2. HUMIRA [Suspect]
  3. HUMIRA [Suspect]
     Dosage: SWITCHED TO HUMIRA PEN
  4. PRINZIDE [Concomitant]
     Indication: HYPERTENSION
     Route: 048
     Dates: start: 19980201
  5. METOPROLOL SUCCINATE [Concomitant]
     Indication: HEART RATE
     Dates: start: 19990101
  6. FUROSEMIDE [Concomitant]
     Indication: OEDEMA PERIPHERAL
     Route: 048
     Dates: start: 19870101
  7. ZINC [Concomitant]
     Indication: MEDICAL DIET
     Route: 048
     Dates: start: 20050101
  8. FISH OIL [Concomitant]
     Indication: MEDICAL DIET
     Route: 048
     Dates: start: 20050101
  9. MULTI-VITAMIN [Concomitant]
     Indication: VITAMIN SUPPLEMENTATION
     Route: 048
     Dates: start: 20050101
  10. SALBUTAMOL SULFATE [Concomitant]
     Indication: CHRONIC OBSTRUCTIVE PULMONARY DISEASE
     Route: 055
     Dates: start: 19990101
  11. SALBUTAMOL SULFATE [Concomitant]
     Indication: EMPHYSEMA
  12. TIOTROPIUM BROMIDE [Concomitant]
     Indication: BRONCHOSPASM
     Dates: start: 20010101
  13. PREGABALIN [Concomitant]
     Indication: ANGIOPATHY
     Route: 048
     Dates: start: 20060101

REACTIONS (5)
  - CHRONIC OBSTRUCTIVE PULMONARY DISEASE [None]
  - COMA [None]
  - DRUG INEFFECTIVE [None]
  - GLUCOSE TOLERANCE IMPAIRED [None]
  - WHITE BLOOD CELL COUNT INCREASED [None]
